FAERS Safety Report 8181274-0 (Version None)
Quarter: 2012Q1

REPORT INFORMATION
  Report Type: 
  Country: None (occurrence: None)
  Receive Date: 20120126
  Receipt Date: 20111128
  Transmission Date: 20120608
  Serious: Yes (Other)
  Sender: FDA-Public Use
  Company Number: PHHY2011US19594

PATIENT
  Age: 9 Year
  Sex: Male

DRUGS (4)
  1. AFINITOR [Suspect]
     Indication: TUBEROUS SCLEROSIS
     Dosage: 7.5 MG, QD, ORAL
     Route: 048
     Dates: start: 20100714
  2. SABRIL [Concomitant]
  3. TAURINE (TAURINE) [Concomitant]
  4. VIMPAT [Concomitant]

REACTIONS (7)
  - GRAND MAL CONVULSION [None]
  - CONJUNCTIVITIS INFECTIVE [None]
  - PNEUMONIA [None]
  - SINUSITIS [None]
  - RESPIRATORY ARREST [None]
  - RHINORRHOEA [None]
  - PYREXIA [None]
